FAERS Safety Report 9351657 (Version 1)
Quarter: 2013Q2

REPORT INFORMATION
  Report Type: Spontaneous
  Country: FR (occurrence: FR)
  Receive Date: 20130617
  Receipt Date: 20130617
  Transmission Date: 20140414
  Serious: Yes (Other)
  Sender: FDA-Public Use
  Company Number: FR-TEVA-412559ISR

PATIENT
  Sex: Male

DRUGS (1)
  1. FUROSEMIDE TEVA 40 MG [Suspect]
     Indication: CARDIAC DISORDER
     Dosage: 160 MILLIGRAM DAILY;
     Dates: start: 201305, end: 201306

REACTIONS (3)
  - Cardiac disorder [Unknown]
  - Palpitations [Unknown]
  - Somnolence [Not Recovered/Not Resolved]
